FAERS Safety Report 8996699 (Version 1)
Quarter: 2012Q4

REPORT INFORMATION
  Report Type: Spontaneous
  Country: US (occurrence: None)
  Receive Date: 20121228
  Receipt Date: 20121228
  Transmission Date: 20130627
  Serious: No
  Sender: FDA-Public Use
  Company Number: None

PATIENT
  Sex: Male

DRUGS (6)
  1. RITALIN [Suspect]
     Indication: ANGER
     Dosage: 1 1/2 qam #45 DAW
  2. RITALIN [Suspect]
     Indication: ASPERGER^S SYNDROME
     Dosage: 1 1/2 qam #45 DAW
  3. RITALIN [Suspect]
     Indication: PERVASIVE DEVELOPMENTAL DISORDER
     Dosage: 1 1/2 qam #45 DAW
  4. RITALIN [Suspect]
     Indication: ADHD
     Dosage: 1 1/2 qam #45 DAW
  5. RITALIN [Suspect]
     Indication: IRRITABILITY
     Dosage: 1 1/2 qam #45 DAW
  6. RITALIN [Suspect]
     Indication: BIPOLAR DISORDER
     Dosage: 1 1/2 qam #45 DAW

REACTIONS (1)
  - Drug ineffective [None]
